FAERS Safety Report 9693724 (Version 2)
Quarter: 2014Q2

REPORT INFORMATION
  Report Type: Spontaneous
  Country: US (occurrence: US)
  Receive Date: 20131118
  Receipt Date: 20140522
  Transmission Date: 20141212
  Serious: Yes (Hospitalization, Other)
  Sender: FDA-Public Use
  Company Number: US-B.I. PHARMACEUTICALS,INC./RIDGEFIELD-2013-BI-36924BP

PATIENT
  Age: 77 Year
  Sex: Male
  Weight: 79.38 kg

DRUGS (8)
  1. PRADAXA [Suspect]
     Indication: ATRIAL FIBRILLATION
     Dosage: 150 MG
     Route: 048
     Dates: start: 20111010, end: 20130117
  2. DEMADEX [Concomitant]
     Dosage: 10 MG
     Route: 048
  3. VANTIN [Concomitant]
     Dosage: 200 MG
     Route: 048
  4. PERCOCET [Concomitant]
     Dosage: 5-325 MG PER 2 TAB
     Route: 048
  5. LAMISIL [Concomitant]
     Dosage: 250 MG
     Route: 048
  6. LANOXIN [Concomitant]
     Dosage: 0.125 MG
     Route: 048
  7. MULTIVITAMIN [Concomitant]
     Dosage: 1 ANZ
     Route: 048
  8. FISH OIL [Concomitant]
     Dosage: 1200-144-216 MG PER 1 CAPSULE
     Route: 048

REACTIONS (6)
  - Small intestinal haemorrhage [Recovered/Resolved]
  - Haemorrhagic anaemia [Unknown]
  - Syncope [Unknown]
  - Coagulopathy [Unknown]
  - Renal failure acute [Unknown]
  - Respiratory failure [Recovered/Resolved]
